FAERS Safety Report 14991840 (Version 1)
Quarter: 2018Q2

REPORT INFORMATION
  Report Type: Spontaneous
  Country: US (occurrence: US)
  Receive Date: 20180517
  Receipt Date: 20180517
  Transmission Date: 20180711
  Serious: Yes (Hospitalization)
  Sender: FDA-Public Use
  Company Number: None

PATIENT
  Age: 64 Year
  Sex: Male

DRUGS (15)
  1. VOTRIENT [Suspect]
     Active Substance: PAZOPANIB HYDROCHLORIDE
     Indication: PRODUCT USED FOR UNKNOWN INDICATION
     Route: 048
     Dates: start: 20180120, end: 201805
  2. PROMETHAZINE [Concomitant]
     Active Substance: PROMETHAZINE\PROMETHAZINE HYDROCHLORIDE
  3. GABAPENTIN. [Concomitant]
     Active Substance: GABAPENTIN
  4. PROCLORPERAZINE [Concomitant]
  5. METHYLPRED [Concomitant]
     Active Substance: METHYLPREDNISOLONE
  6. DOK [Concomitant]
     Active Substance: DOCUSATE SODIUM
  7. LEVOFLOXACIN. [Concomitant]
     Active Substance: LEVOFLOXACIN
  8. POLYETH GLY [Concomitant]
  9. OXYCODONE [Concomitant]
     Active Substance: OXYCODONE
  10. FENTANYL. [Concomitant]
     Active Substance: FENTANYL
  11. IBU [Concomitant]
     Active Substance: IBUPROFEN
  12. XARELTO [Concomitant]
     Active Substance: RIVAROXABAN
  13. METHOCARBAMOL. [Concomitant]
     Active Substance: METHOCARBAMOL
  14. PREDNISONE. [Concomitant]
     Active Substance: PREDNISONE
  15. DEXAMETHASONE. [Concomitant]
     Active Substance: DEXAMETHASONE

REACTIONS (1)
  - Jaundice [None]

NARRATIVE: CASE EVENT DATE: 20180509
